FAERS Safety Report 13065840 (Version 4)
Quarter: 2017Q4

REPORT INFORMATION
  Report Type: Report from Study
  Country: CA (occurrence: CA)
  Receive Date: 20161227
  Receipt Date: 20171020
  Transmission Date: 20180320
  Serious: Yes (Hospitalization, Other)
  Sender: FDA-Public Use
  Company Number: CA-GLAXOSMITHKLINE-CA2016GSK190499

PATIENT
  Age: 79 Year
  Sex: Male

DRUGS (2)
  1. MEPOLIZUMAB [Suspect]
     Active Substance: MEPOLIZUMAB
     Dosage: UNK
     Route: 042
     Dates: start: 20161026
  2. MEPOLIZUMAB [Suspect]
     Active Substance: MEPOLIZUMAB
     Indication: ASTHMA
     Dosage: 100 MG, Z
     Route: 042
     Dates: start: 20160901

REACTIONS (6)
  - Catheter placement [Unknown]
  - Inappropriate schedule of drug administration [Unknown]
  - Hospitalisation [Unknown]
  - Dyspnoea [Unknown]
  - Asthma [Unknown]
  - Lung disorder [Unknown]

NARRATIVE: CASE EVENT DATE: 201611
